FAERS Safety Report 5060484-5 (Version None)
Quarter: 2006Q3

REPORT INFORMATION
  Report Type: 
  Country: None (occurrence: None)
  Receive Date: 20060719
  Receipt Date: 20060719
  Transmission Date: 20061208
  Serious: No
  Sender: FDA-Public Use
  Company Number: None

PATIENT
  Age: 79 Year
  Sex: Male
  Weight: 55.7 kg

DRUGS (4)
  1. MORPHINE [Suspect]
     Indication: PAIN MANAGEMENT
     Dosage: 1 MG Q4HWA PO
     Route: 048
     Dates: start: 20060513, end: 20060522
  2. TRIAMCINOLONE ACET INJ, SUSP [Concomitant]
  3. DIPHENHYDRAMINE INJ, SOLN [Concomitant]
  4. CALAMINE LOTION [Concomitant]

REACTIONS (1)
  - RASH [None]
